FAERS Safety Report 16290418 (Version 1)
Quarter: 2019Q2

REPORT INFORMATION
  Report Type: Spontaneous
  Country: US (occurrence: US)
  Receive Date: 20190508
  Receipt Date: 20190508
  Transmission Date: 20190711
  Serious: Yes (Disabling, Other)
  Sender: FDA-Public Use
  Company Number: None

PATIENT
  Age: 57 Year
  Sex: Female
  Weight: 83.8 kg

DRUGS (1)
  1. CYTARABINE. [Suspect]
     Active Substance: CYTARABINE
     Indication: ACUTE MYELOID LEUKAEMIA
     Dosage: ?          OTHER FREQUENCY:EVERY 3 WEEKS X 4;?
     Route: 040
     Dates: start: 20190304, end: 20190501

REACTIONS (6)
  - Head discomfort [None]
  - Photosensitivity reaction [None]
  - Gaze palsy [None]
  - Neurotoxicity [None]
  - Nausea [None]
  - Headache [None]

NARRATIVE: CASE EVENT DATE: 20190502
